FAERS Safety Report 13622187 (Version 1)
Quarter: 2017Q2

REPORT INFORMATION
  Report Type: Spontaneous
  Country: US (occurrence: US)
  Receive Date: 20170607
  Receipt Date: 20170607
  Transmission Date: 20170830
  Serious: No
  Sender: FDA-Public Use
  Company Number: US-ROCHE-1831699

PATIENT
  Age: 67 Year
  Sex: Female

DRUGS (1)
  1. XELODA [Suspect]
     Active Substance: CAPECITABINE
     Indication: BREAST CANCER FEMALE
     Dosage: 9 TABS FOR 14 DAYS ON, THEN 7 DAYS OFF
     Route: 048
     Dates: start: 20160809

REACTIONS (3)
  - Rash [Unknown]
  - Vision blurred [Unknown]
  - Burning sensation [Unknown]

NARRATIVE: CASE EVENT DATE: 20160915
